FAERS Safety Report 6823174-1 (Version None)
Quarter: 2010Q3

REPORT INFORMATION
  Report Type: 
  Country: None (occurrence: None)
  Receive Date: 20100708
  Receipt Date: 20100630
  Transmission Date: 20110219
  Serious: Yes (Death, Other)
  Sender: FDA-Public Use
  Company Number: DE-AMGEN-QUU421643

PATIENT
  Sex: Male

DRUGS (1)
  1. NPLATE [Suspect]
     Indication: APLASTIC ANAEMIA

REACTIONS (2)
  - APLASTIC ANAEMIA [None]
  - NO THERAPEUTIC RESPONSE [None]
